FAERS Safety Report 25239788 (Version 1)
Quarter: 2025Q2

REPORT INFORMATION
  Report Type: Spontaneous
  Country: US (occurrence: None)
  Receive Date: 20250424
  Receipt Date: 20250424
  Transmission Date: 20250716
  Serious: Yes (Hospitalization)
  Sender: FDA-CTU
  Company Number: None

PATIENT
  Age: 30 Year
  Sex: Female

DRUGS (1)
  1. ZURZUVAE [Suspect]
     Active Substance: ZURANOLONE
     Indication: Perinatal depression
     Dosage: FREQUENCY : AT BEDTIME;?
     Route: 048

REACTIONS (5)
  - Dizziness [None]
  - Confusional state [None]
  - Dysarthria [None]
  - Gait disturbance [None]
  - Muscle twitching [None]

NARRATIVE: CASE EVENT DATE: 20250419
